FAERS Safety Report 7458704-2 (Version None)
Quarter: 2011Q2

REPORT INFORMATION
  Report Type: 
  Country: None (occurrence: None)
  Receive Date: 20110504
  Receipt Date: 20100616
  Transmission Date: 20111010
  Serious: No
  Sender: FDA-Public Use
  Company Number: US-SANOFI-AVENTIS-2010SA040202

PATIENT
  Sex: Female
  Weight: 75 kg

DRUGS (3)
  1. OPTICLICK [Suspect]
     Dates: start: 20060806
  2. APIDRA [Suspect]
     Dosage: 5-7 UNITS THRICE A DAY
     Route: 058
     Dates: start: 20060101
  3. LANTUS [Suspect]
     Dosage: DOSE:32 UNIT(S)
     Route: 058
     Dates: start: 20060806

REACTIONS (3)
  - BLOOD GLUCOSE DECREASED [None]
  - CONDITION AGGRAVATED [None]
  - VISUAL IMPAIRMENT [None]
